FAERS Safety Report 15143096 (Version 1)
Quarter: 2018Q3

REPORT INFORMATION
  Report Type: Spontaneous
  Country: RO (occurrence: RO)
  Receive Date: 20180713
  Receipt Date: 20180713
  Transmission Date: 20181010
  Serious: Yes (Other)
  Sender: FDA-Public Use
  Company Number: RO-PFIZER INC-2018279703

PATIENT
  Age: 68 Year
  Sex: Female
  Weight: 51 kg

DRUGS (2)
  1. IBUPROFEN. [Suspect]
     Active Substance: IBUPROFEN
     Indication: OSTEOARTHRITIS
     Dosage: 200 MG, ALTERNATE DAY
     Route: 048
     Dates: start: 20180414, end: 20180419
  2. ALFLUTOP [Suspect]
     Active Substance: AMINO ACIDS\DEXTROSE\ELECTROLYTES NOS
     Indication: OSTEOARTHRITIS
     Dosage: 6 MILLILITRES IN 6 DAYS, 1 ML PER DAY
     Route: 030
     Dates: start: 20180414, end: 20180419

REACTIONS (2)
  - Thrombocytopenia [Recovered/Resolved]
  - Thrombocytopenic purpura [Recovered/Resolved]

NARRATIVE: CASE EVENT DATE: 20180420
